FAERS Safety Report 9580668 (Version 2)
Quarter: 2013Q4

REPORT INFORMATION
  Report Type: Spontaneous
  Country: FR (occurrence: FR)
  Receive Date: 20131002
  Receipt Date: 20131101
  Transmission Date: 20140711
  Serious: Yes (Hospitalization, Other)
  Sender: FDA-Public Use
  Company Number: FR-ABBVIE-13P-056-1152030-00

PATIENT
  Age: 22 Year
  Sex: Female
  Weight: 65 kg

DRUGS (2)
  1. HUMIRA [Suspect]
     Indication: PSORIASIS
     Route: 058
     Dates: start: 201304, end: 20130520
  2. HUMIRA [Suspect]
     Route: 058
     Dates: start: 20130530, end: 201310

REACTIONS (2)
  - Suicide attempt [Recovering/Resolving]
  - Affective disorder [Unknown]
